FAERS Safety Report 6027409-7 (Version None)
Quarter: 2008Q4

REPORT INFORMATION
  Report Type: 
  Country: None (occurrence: None)
  Receive Date: 20081222
  Receipt Date: 20080919
  Transmission Date: 20090506
  Serious: No
  Sender: FDA-Public Use
  Company Number: US-WYE-H06067708

PATIENT
  Age: 47 Year
  Sex: Female

DRUGS (1)
  1. PRISTIQ [Suspect]
     Indication: HEADACHE
     Dosage: 50 MG 1X PER 1 TOT, ORAL
     Route: 048
     Dates: start: 20080918, end: 20080918

REACTIONS (3)
  - CONDITION AGGRAVATED [None]
  - HEADACHE [None]
  - INSOMNIA [None]
